FAERS Safety Report 8275049-1 (Version None)
Quarter: 2012Q2

REPORT INFORMATION
  Report Type: 
  Country: None (occurrence: None)
  Receive Date: 20120411
  Receipt Date: 20120402
  Transmission Date: 20120825
  Serious: Yes (Death)
  Sender: FDA-Public Use
  Company Number: IE-MEDIMMUNE-MEDI-0014624

PATIENT
  Sex: Male
  Weight: 10.5 kg

DRUGS (15)
  1. IPRATROPIUM BROMIDE [Concomitant]
  2. MIDAZOLAM [Concomitant]
  3. KAPSOVIT [Concomitant]
  4. LEVOTHYROXINE SODIUM [Concomitant]
  5. DOMPERIDONE [Concomitant]
  6. CARBOCISTEINE [Concomitant]
  7. METOCLOPRAMIDE [Concomitant]
  8. MOVIPREP [Concomitant]
  9. PHENOBARBITAL TAB [Concomitant]
  10. SYNAGIS [Suspect]
     Route: 030
     Dates: start: 20111025, end: 20111025
  11. FERROUS SULFATE TAB [Concomitant]
  12. EPILM [Concomitant]
  13. OMEPRAZOLE [Concomitant]
  14. AMBROXOL HYDROCHLORIDE [Concomitant]
  15. BUDESONIDE [Concomitant]

REACTIONS (1)
  - DEATH [None]
